FAERS Safety Report 8795832 (Version 1)
Quarter: 2012Q4

REPORT INFORMATION
  Report Type: Report from Study
  Country: NO (occurrence: NO)
  Receive Date: 20120919
  Receipt Date: 20120919
  Transmission Date: 20130627
  Serious: Yes (Hospitalization)
  Sender: FDA-Public Use
  Company Number: NO-TEVA-358741USA

PATIENT

DRUGS (3)
  1. TREANDA [Suspect]
     Dates: start: 20120308
  2. LENALIDOMIDE [Suspect]
     Dates: start: 20120308
  3. RITUXIMAB [Suspect]
     Dates: start: 20120308

REACTIONS (2)
  - Pneumonia [Recovered/Resolved]
  - General physical health deterioration [Recovered/Resolved]
